FAERS Safety Report 12090843 (Version 1)
Quarter: 2016Q1

REPORT INFORMATION
  Report Type: Spontaneous
  Country: US (occurrence: US)
  Receive Date: 20160218
  Receipt Date: 20160218
  Transmission Date: 20160526
  Serious: Yes (Other)
  Sender: FDA-Public Use
  Company Number: US-BIOGEN-2016BI00191002

PATIENT
  Sex: Female

DRUGS (1)
  1. TECFIDERA [Suspect]
     Active Substance: DIMETHYL FUMARATE
     Indication: MULTIPLE SCLEROSIS
     Route: 065
     Dates: start: 201512

REACTIONS (7)
  - Epilepsy [Unknown]
  - Neuropathy peripheral [Unknown]
  - Gastric disorder [Unknown]
  - Seizure [Unknown]
  - Arthralgia [Unknown]
  - Pain [Unknown]
  - Inflammation [Unknown]
